FAERS Safety Report 25756142 (Version 4)
Quarter: 2025Q4

REPORT INFORMATION
  Report Type: Report from Study
  Country: PH (occurrence: PH)
  Receive Date: 20250903
  Receipt Date: 20251216
  Transmission Date: 20260118
  Serious: Yes (Death, Hospitalization)
  Sender: OTSUKA
  Company Number: PH-MMM-Otsuka-FW675RKO

PATIENT
  Sex: Male

DRUGS (2)
  1. TOLVAPTAN [Suspect]
     Active Substance: TOLVAPTAN
     Indication: Oedema peripheral
     Dosage: 15 MG, QOD (EVERY OTHER DAY AT 8 AM)
     Route: 061
     Dates: start: 20250814, end: 20250919
  2. TOLVAPTAN [Suspect]
     Active Substance: TOLVAPTAN
     Indication: Hypotension

REACTIONS (3)
  - Prostate cancer [Fatal]
  - Oedema [Unknown]
  - Inappropriate schedule of product administration [Unknown]

NARRATIVE: CASE EVENT DATE: 20250814
